FAERS Safety Report 8604666-1 (Version None)
Quarter: 2012Q3

REPORT INFORMATION
  Report Type: 
  Country: None (occurrence: None)
  Receive Date: 20120808
  Receipt Date: 20120808
  Transmission Date: 20120928
  Serious: No
  Sender: FDA-Public Use
  Company Number: None

PATIENT
  Age: 29 Year
  Sex: Female
  Weight: 55.7924 kg

DRUGS (1)
  1. NITROFURANTOIN MACROCRYSTALLINE [Suspect]
     Indication: URINARY TRACT INFECTION
     Dosage: 100 MG 2 DAILY, PO
     Route: 048
     Dates: start: 20120616, end: 20120626

REACTIONS (4)
  - PARAESTHESIA [None]
  - NAUSEA [None]
  - VOMITING [None]
  - GASTROINTESTINAL DISORDER [None]
